FAERS Safety Report 10933809 (Version 2)
Quarter: 2015Q2

REPORT INFORMATION
  Report Type: Report from Study
  Country: US (occurrence: US)
  Receive Date: 20150320
  Receipt Date: 20150601
  Transmission Date: 20150821
  Serious: Yes (Hospitalization)
  Sender: FDA-Public Use
  Company Number: US-EISAI MEDICAL RESEARCH-EC-2015-005108

PATIENT
  Age: 64 Year
  Sex: Female
  Weight: 86 kg

DRUGS (1)
  1. LENVIMA [Suspect]
     Active Substance: LENVATINIB
     Indication: THYROID CANCER
     Route: 048
     Dates: start: 20150310, end: 201503

REACTIONS (3)
  - Brain oedema [Unknown]
  - Vomiting [Unknown]
  - Hypertension [Unknown]

NARRATIVE: CASE EVENT DATE: 20150319
